FAERS Safety Report 12326161 (Version 2)
Quarter: 2016Q2

REPORT INFORMATION
  Report Type: Spontaneous
  Country: US (occurrence: US)
  Receive Date: 20160503
  Receipt Date: 20160624
  Transmission Date: 20160815
  Serious: Yes (Other)
  Sender: FDA-Public Use
  Company Number: US-009507513-1604USA007220

PATIENT
  Sex: Female

DRUGS (1)
  1. FOSAMAX [Suspect]
     Active Substance: ALENDRONATE SODIUM
     Dosage: UNK
     Route: 048

REACTIONS (5)
  - Cholelithiasis [Unknown]
  - Urinary tract infection [Unknown]
  - Blood calcium increased [Unknown]
  - Nephrolithiasis [Unknown]
  - Urine calcium increased [Unknown]
